FAERS Safety Report 6211026-X (Version None)
Quarter: 2009Q2

REPORT INFORMATION
  Report Type: 
  Country: None (occurrence: None)
  Receive Date: 20090602
  Receipt Date: 20090526
  Transmission Date: 20091009
  Serious: Yes (Hospitalization)
  Sender: FDA-Public Use
  Company Number: US-CELGENEUS-163-21880-09051729

PATIENT
  Sex: Male

DRUGS (1)
  1. REVLIMID [Suspect]
     Indication: MULTIPLE MYELOMA
     Route: 048
     Dates: start: 20090429

REACTIONS (3)
  - BODY TEMPERATURE INCREASED [None]
  - METASTASES TO LIVER [None]
  - PROSTATIC SPECIFIC ANTIGEN INCREASED [None]
